FAERS Safety Report 16164559 (Version 2)
Quarter: 2020Q3

REPORT INFORMATION
  Report Type: Spontaneous
  Country: FR (occurrence: FR)
  Receive Date: 20190405
  Receipt Date: 20200803
  Transmission Date: 20201102
  Serious: Yes (Other)
  Sender: FDA-Public Use
  Company Number: FR-ALLERGAN-1914908US

PATIENT

DRUGS (1)
  1. URSODEOXYCHOLIC ACID UNK [Suspect]
     Active Substance: URSODIOL
     Indication: CHOLELITHIASIS

REACTIONS (4)
  - Infectious disease carrier [Unknown]
  - Hepatectomy [Unknown]
  - Off label use [Unknown]
  - Drug ineffective [Unknown]
